FAERS Safety Report 10692639 (Version 1)
Quarter: 2015Q1

REPORT INFORMATION
  Report Type: Report from Study
  Country: ES (occurrence: ES)
  Receive Date: 20150106
  Receipt Date: 20150106
  Transmission Date: 20150720
  Serious: Yes (Hospitalization)
  Sender: FDA-Public Use
  Company Number: PHHO2014ES017323

PATIENT
  Age: 14 Year
  Sex: Male
  Weight: 54 kg

DRUGS (4)
  1. BLINDED NO TREATMENT RECEIVED [Suspect]
     Active Substance: UNSPECIFIED INGREDIENT
     Indication: PYREXIA
     Dosage: CODE NOT BROKEN
     Route: 058
     Dates: start: 20141001
  2. PLACEBO [Suspect]
     Active Substance: UNSPECIFIED INGREDIENT
     Indication: PYREXIA
     Dosage: CODE NOT BROKEN
     Route: 058
     Dates: start: 20141001
  3. BLINDED ACZ885 [Suspect]
     Active Substance: CANAKINUMAB
     Indication: PYREXIA
     Dosage: CODE NOT BROKEN
     Route: 058
     Dates: start: 20141001
  4. COLCHICINE. [Concomitant]
     Active Substance: COLCHICINE
     Indication: FAMILIAL MEDITERRANEAN FEVER
     Dosage: 0.5 MG, Q12H
     Route: 065
     Dates: start: 20081016, end: 20141229

REACTIONS (1)
  - Pharyngotonsillitis [Recovering/Resolving]

NARRATIVE: CASE EVENT DATE: 20141230
